FAERS Safety Report 5593507-5 (Version None)
Quarter: 2007Q4

REPORT INFORMATION
  Report Type: 
  Country: None (occurrence: None)
  Receive Date: 20071218
  Receipt Date: 20061109
  Transmission Date: 20080405
  Serious: Yes (Hospitalization)
  Sender: FDA-Public Use
  Company Number: 2005130615

PATIENT
  Age: 48 Year
  Sex: Male
  Weight: 86.1834 kg

DRUGS (1)
  1. BEXTRA [Suspect]
     Indication: MUSCULOSKELETAL PAIN
     Dosage: ONE PER DAY OR AT TIMES TWO PER DAY (20 MG,1 D),ORAL
     Route: 048
     Dates: start: 20020701

REACTIONS (1)
  - MYOCARDIAL INFARCTION [None]
